FAERS Safety Report 8896114 (Version 9)
Quarter: 2013Q2

REPORT INFORMATION
  Report Type: Spontaneous
  Country: US (occurrence: US)
  Receive Date: 20121108
  Receipt Date: 20130517
  Transmission Date: 20140414
  Serious: Yes (Hospitalization, Disabling, Other)
  Sender: FDA-Public Use
  Company Number: US-009507513-1106USA02201

PATIENT
  Sex: Female

DRUGS (8)
  1. FOSAMAX [Suspect]
     Indication: OSTEOPENIA
     Dosage: 10 MG, QD
     Route: 048
     Dates: start: 1998, end: 2002
  2. FOSAMAX [Suspect]
     Dosage: 35 MG, QW
     Route: 048
     Dates: start: 1998, end: 2002
  3. FOSAMAX [Suspect]
     Dosage: 70 MG, QW
     Route: 048
     Dates: start: 2002, end: 20110613
  4. ALENDRONATE SODIUM [Suspect]
     Route: 048
  5. PREMPRO [Concomitant]
  6. NAPROSYN [Concomitant]
  7. VITAMIN D (UNSPECIFIED) [Concomitant]
     Dosage: 1 DF, QD
     Route: 048
     Dates: start: 2000
  8. HORMONES (UNSPECIFIED) [Concomitant]
     Dosage: UNK
     Dates: start: 1994, end: 2012

REACTIONS (18)
  - Open reduction of fracture [Unknown]
  - Fracture nonunion [Not Recovered/Not Resolved]
  - Bone graft [Unknown]
  - Femur fracture [Not Recovered/Not Resolved]
  - Depression [Recovered/Resolved]
  - Anxiety [Recovered/Resolved]
  - Cellulitis [Unknown]
  - Limb asymmetry [Unknown]
  - Low turnover osteopathy [Unknown]
  - Bursitis [Unknown]
  - Joint injury [Unknown]
  - Herpes zoster [Unknown]
  - Arthroscopy [Unknown]
  - Spinal osteoarthritis [Unknown]
  - Osteoporosis [Unknown]
  - Pain in extremity [Unknown]
  - Gastrooesophageal reflux disease [Unknown]
  - Gastrooesophageal reflux disease [Unknown]
